FAERS Safety Report 12902355 (Version 1)
Quarter: 2016Q4

REPORT INFORMATION
  Report Type: Spontaneous
  Country: FR (occurrence: FR)
  Receive Date: 20161102
  Receipt Date: 20161102
  Transmission Date: 20170207
  Serious: Yes (Hospitalization)
  Sender: FDA-Public Use
  Company Number: FR-ACCORD-045218

PATIENT
  Age: 61 Year
  Sex: Female

DRUGS (17)
  1. CEFAZOLIN MYLAN [Suspect]
     Active Substance: CEFAZOLIN
     Indication: ENDOCARDITIS
     Dosage: 1 G (IM-IV)
     Route: 042
     Dates: start: 20160731, end: 20160806
  2. ROSUVASTATIN/ROSUVASTATIN CALCIUM [Concomitant]
  3. ONDANSETRON ACCORD [Suspect]
     Active Substance: ONDANSETRON
     Indication: NAUSEA
     Dosage: 2 MG/ML, ONE INTAKE
     Route: 042
     Dates: start: 20160906
  4. GENTAMICIN. [Concomitant]
     Active Substance: GENTAMICIN
     Dates: start: 20160831
  5. INEXIUM [Suspect]
     Active Substance: ESOMEPRAZOLE
     Indication: PROPHYLAXIS
     Route: 042
     Dates: start: 20160905
  6. RAMIPRIL. [Concomitant]
     Active Substance: RAMIPRIL
  7. ALFACALCIDOL [Concomitant]
     Active Substance: ALFACALCIDOL
  8. ESOMEPRAZOLE/ESOMEPRAZOLE MAGNESIUM/ESOMEPRAZOLE SODIUM [Concomitant]
  9. LEVOFLOXACIN ACTAVIS [Suspect]
     Active Substance: LEVOFLOXACIN
     Indication: ENDOCARDITIS
     Dosage: ONE SINGLE INTAKE AT 8 P.M
     Route: 042
     Dates: start: 20160905
  10. ALLOPURINOL. [Concomitant]
     Active Substance: ALLOPURINOL
  11. INSULIN [Concomitant]
     Active Substance: INSULIN NOS
     Dosage: 38 IU AND 40 IU IN THE EVENING
  12. BISOPROLOL [Concomitant]
     Active Substance: BISOPROLOL
  13. PREGABALIN. [Concomitant]
     Active Substance: PREGABALIN
  14. IRON [Concomitant]
     Active Substance: IRON
  15. ACUPAN [Suspect]
     Active Substance: NEFOPAM HYDROCHLORIDE
     Indication: PAIN
     Route: 048
     Dates: start: 20160707, end: 20160906
  16. INSULIN [Concomitant]
     Active Substance: INSULIN NOS
  17. FUROSEMIDE. [Concomitant]
     Active Substance: FUROSEMIDE

REACTIONS (3)
  - Electroencephalogram abnormal [Recovered/Resolved]
  - Status epilepticus [Recovered/Resolved]
  - Generalised tonic-clonic seizure [Recovered/Resolved]

NARRATIVE: CASE EVENT DATE: 20160906
